FAERS Safety Report 17710871 (Version 2)
Quarter: 2020Q2

REPORT INFORMATION
  Report Type: Spontaneous
  Country: SE (occurrence: SE)
  Receive Date: 20200427
  Receipt Date: 20200509
  Transmission Date: 20200714
  Serious: Yes (Other)
  Sender: FDA-Public Use
  Company Number: SE-ROCHE-2573426

PATIENT
  Age: 67 Year
  Sex: Male

DRUGS (1)
  1. ROACTEMRA [Suspect]
     Active Substance: TOCILIZUMAB
     Indication: COVID-19
     Dosage: 620 MG
     Route: 042
     Dates: start: 20200319, end: 20200319

REACTIONS (6)
  - Product use in unapproved indication [Unknown]
  - Hypertension [Unknown]
  - Lethargy [Unknown]
  - Fatigue [Unknown]
  - Renal impairment [Unknown]
  - Off label use [Unknown]
